FAERS Safety Report 16443505 (Version 2)
Quarter: 2025Q2

REPORT INFORMATION
  Report Type: Spontaneous
  Country: US (occurrence: US)
  Receive Date: 20190618
  Receipt Date: 20250417
  Transmission Date: 20250716
  Serious: Yes (Other)
  Sender: ASTELLAS
  Company Number: US-ROCHE-2334462

PATIENT
  Age: 76 Year
  Sex: Female
  Weight: 50 kg

DRUGS (2)
  1. TARCEVA [Suspect]
     Active Substance: ERLOTINIB HYDROCHLORIDE
     Indication: Non-small cell lung cancer metastatic
     Dosage: 150 MG, ONCE DAILY
     Route: 048
     Dates: start: 20150713
  2. CASTOR OIL [Concomitant]
     Active Substance: CASTOR OIL
     Indication: Product used for unknown indication
     Route: 048

REACTIONS (9)
  - Barrett^s oesophagus [Unknown]
  - Neoplasm [Not Recovered/Not Resolved]
  - Lung neoplasm [Not Recovered/Not Resolved]
  - Rash [Recovered/Resolved with Sequelae]
  - Eye pain [Unknown]
  - Dry eye [Unknown]
  - Back pain [Unknown]
  - Muscle spasms [Unknown]
  - Eyelid vellus hair changes [Unknown]

NARRATIVE: CASE EVENT DATE: 20150726
